FAERS Safety Report 11101041 (Version 1)
Quarter: 2015Q2

REPORT INFORMATION
  Report Type: Spontaneous
  Country: JP (occurrence: JP)
  Receive Date: 20150508
  Receipt Date: 20150508
  Transmission Date: 20150821
  Serious: Yes (Other)
  Sender: FDA-Public Use
  Company Number: JP-BAXTER-2015BAX023135

PATIENT
  Age: 10 Year
  Sex: Female

DRUGS (43)
  1. ENDOXAN 1G [Suspect]
     Active Substance: CYCLOPHOSPHAMIDE
     Dosage: 25 PERCENT OF PROTOCOL DOSE, CONSOLIDATION DOSE
     Route: 065
  2. ENDOXAN 1G [Suspect]
     Active Substance: CYCLOPHOSPHAMIDE
     Dosage: 25 PERCENT OF PROTOCOL DOSE, MAINTENANCE PHASE
     Route: 065
  3. CYTARABINE. [Suspect]
     Active Substance: CYTARABINE
     Indication: ACUTE LYMPHOCYTIC LEUKAEMIA
     Dosage: 2 DOSES OF IT TRIPLE INDUCTION THERAPY
     Route: 037
     Dates: start: 2009
  4. CYTARABINE. [Suspect]
     Active Substance: CYTARABINE
     Dosage: 7 DOSES OF IT TRIPLE MAINTENANCE THERAPY
     Route: 037
  5. HYDROCORTISONE. [Suspect]
     Active Substance: HYDROCORTISONE
     Dosage: RE-INDUCTION THERAPY
     Route: 037
  6. HYDROCORTISONE. [Suspect]
     Active Substance: HYDROCORTISONE
     Dosage: 2 DOSES OF IT TRIPLE RE-CONSOLIDATION THERAPY
     Route: 037
  7. 6-MERCAPTOPURINE [Suspect]
     Active Substance: MERCAPTOPURINE
     Indication: ACUTE LYMPHOCYTIC LEUKAEMIA
     Dosage: MAINTENANCE PHASE
     Route: 065
  8. METHOTREXATE [Suspect]
     Active Substance: METHOTREXATE
     Dosage: 2 DOSES OF IT TRIPLE RE-CONSOLIDATION THERAPY
     Route: 037
  9. METHOTREXATE [Suspect]
     Active Substance: METHOTREXATE
     Dosage: 7 DOSES OF IT TRIPLE MAINTENANCE THERAPY
     Route: 037
  10. HYDROCORTISONE. [Suspect]
     Active Substance: HYDROCORTISONE
     Dosage: 7 DOSES OF IT TRIPLE MAINTENANCE THERAPY
     Route: 037
  11. L ASPARAGINASE [Suspect]
     Active Substance: ASPARAGINASE
     Indication: ACUTE LYMPHOCYTIC LEUKAEMIA
     Dosage: INDUCTION THERAPY
     Route: 037
     Dates: start: 2009
  12. METHOTREXATE [Suspect]
     Active Substance: METHOTREXATE
     Dosage: RE-INDUCTION THERAPY
     Route: 037
  13. CYTARABINE. [Suspect]
     Active Substance: CYTARABINE
     Dosage: 2 DOSES OF IT TRIPLE, CONSOLIDATION THERAPY
     Route: 037
  14. D-PENICILLAMINE [Concomitant]
     Active Substance: PENICILLAMINE
     Indication: HEPATO-LENTICULAR DEGENERATION
     Route: 065
  15. ZINC ACETATE [Concomitant]
     Active Substance: ZINC ACETATE
     Indication: HEPATO-LENTICULAR DEGENERATION
     Route: 065
  16. DEXAMETHASONE. [Suspect]
     Active Substance: DEXAMETHASONE
     Dosage: CONSOLIDATION THERAPY
     Route: 065
  17. DAUNORUBICIN [Suspect]
     Active Substance: DAUNORUBICIN
     Indication: ACUTE LYMPHOCYTIC LEUKAEMIA
     Dosage: INDUCTION THERAPY
     Route: 065
     Dates: start: 2009
  18. METHOTREXATE [Suspect]
     Active Substance: METHOTREXATE
     Indication: ACUTE LYMPHOCYTIC LEUKAEMIA
     Dosage: INDUCTION THERAPY
     Route: 037
     Dates: start: 2009
  19. CYTARABINE. [Suspect]
     Active Substance: CYTARABINE
     Dosage: 25 PERCENT OF PROTOCOL DOSE, CONSOLIDATION THERAPY
     Route: 065
  20. HYDROCORTISONE. [Suspect]
     Active Substance: HYDROCORTISONE
     Indication: ACUTE LYMPHOCYTIC LEUKAEMIA
     Dosage: 2 DOSES OF IT TRIPLE INDUCTION THERAPY
     Route: 037
     Dates: start: 2009
  21. ENDOXAN 1G [Suspect]
     Active Substance: CYCLOPHOSPHAMIDE
     Dosage: 25 PERCENT OF PROTOCOL DOSE, RE-INDUCTION DOSE
     Route: 065
  22. PREDNISOLONE. [Suspect]
     Active Substance: PREDNISOLONE
     Indication: ACUTE LYMPHOCYTIC LEUKAEMIA
     Dosage: INDUCTION THERAPY
     Route: 065
     Dates: start: 2009
  23. PREDNISOLONE. [Suspect]
     Active Substance: PREDNISOLONE
     Dosage: MAINTENANCE THERAPY
     Route: 065
  24. DEXAMETHASONE. [Suspect]
     Active Substance: DEXAMETHASONE
     Dosage: RE-CONSOLIDATION THERAPY
     Route: 065
  25. VINCRISTINE [Suspect]
     Active Substance: VINCRISTINE
     Dosage: 25 PERCENT OF PROTOCOL DOSE, MAINTENANCE PHASE
     Route: 065
  26. METHOTREXATE [Suspect]
     Active Substance: METHOTREXATE
     Dosage: 2 DOSES OF IT TRIPLE CONSOLIDATION THERAPY
     Route: 037
  27. CYTARABINE. [Suspect]
     Active Substance: CYTARABINE
     Dosage: RE-INDUCTION THERAPY
     Route: 037
  28. PIRARUBICIN [Suspect]
     Active Substance: PIRARUBICIN
     Dosage: 25 PERCENT OF PROTOCOL DOSE, RE-CONSOLIDATION DOSE
     Route: 065
  29. DEXAMETHASONE. [Suspect]
     Active Substance: DEXAMETHASONE
     Indication: ACUTE LYMPHOCYTIC LEUKAEMIA
     Dosage: INDUCTION THERAPY
     Route: 065
     Dates: start: 2009
  30. METHOTREXATE [Suspect]
     Active Substance: METHOTREXATE
     Dosage: 2 DOSES OF IT TRIPLE CONSOLIDATION THERAPY
     Route: 037
  31. METHOTREXATE [Suspect]
     Active Substance: METHOTREXATE
     Dosage: 25 TO 50 PERCENT OF PROTOCOL DOSE, MAINTENANCE PHASE
     Route: 065
  32. HYDROCORTISONE. [Suspect]
     Active Substance: HYDROCORTISONE
     Dosage: 2 DOSES OF CONSOLIDATION THERAPY
     Route: 037
  33. PIRARUBICIN [Suspect]
     Active Substance: PIRARUBICIN
     Dosage: 25 PERCENT OF PROTOCOL DOSE, MAINTENANCE PHASE
     Route: 065
  34. ENDOXAN 1G [Suspect]
     Active Substance: CYCLOPHOSPHAMIDE
     Dosage: 25 PERCENT OF PROTOCOL DOSE, RE-CONSOLIDATION DOSE
     Route: 065
  35. PREDNISOLONE. [Suspect]
     Active Substance: PREDNISOLONE
     Dosage: RE-INDUCTION THERAPY
     Route: 065
  36. VINCRISTINE [Suspect]
     Active Substance: VINCRISTINE
     Indication: ACUTE LYMPHOCYTIC LEUKAEMIA
     Dosage: INDUCTION THERAPY
     Route: 065
     Dates: start: 2009
  37. VINCRISTINE [Suspect]
     Active Substance: VINCRISTINE
     Dosage: 25 PERCENT OF PROTOCOL DOSE,RE-INDUCTION THERAPY
     Route: 065
  38. L ASPARAGINASE [Suspect]
     Active Substance: ASPARAGINASE
     Dosage: RE-INDUCTION THERAPY
     Route: 037
  39. CYTARABINE. [Suspect]
     Active Substance: CYTARABINE
     Dosage: 25 PERCENT OF PROTOCOL DOSE, RE-CONSOLIDATION DOSE
     Route: 037
  40. CYTARABINE. [Suspect]
     Active Substance: CYTARABINE
     Dosage: 2 DOSES OF IT TRIPLE RE-CONSOLIDATION THERAPY
     Route: 037
  41. PIRARUBICIN [Suspect]
     Active Substance: PIRARUBICIN
     Indication: ACUTE LYMPHOCYTIC LEUKAEMIA
     Dosage: 25 PERCENT OF PROTOCOL DOSE, CONSOLIDATION THERAPY
     Route: 065
  42. PIRARUBICIN [Suspect]
     Active Substance: PIRARUBICIN
     Dosage: 25 PERCENT OF PROTOCOL DOSE,RE-INDUCTION THERAPY
     Route: 065
  43. ENDOXAN 1G [Suspect]
     Active Substance: CYCLOPHOSPHAMIDE
     Indication: ACUTE LYMPHOCYTIC LEUKAEMIA
     Dosage: INDUCTION THERAPY
     Route: 065
     Dates: start: 2009

REACTIONS (4)
  - Hyponatraemia [Recovered/Resolved]
  - Bone marrow failure [Unknown]
  - Hepatotoxicity [Recovered/Resolved]
  - Portal hypertension [Unknown]
